FAERS Safety Report 15003114 (Version 1)
Quarter: 2018Q2

REPORT INFORMATION
  Report Type: Report from Study
  Country: CN (occurrence: CN)
  Receive Date: 20180612
  Receipt Date: 20180612
  Transmission Date: 20180711
  Serious: Yes (Other)
  Sender: FDA-Public Use
  Company Number: CN-SUN PHARMACEUTICAL INDUSTRIES LTD-2018R1-175426

PATIENT
  Age: 27 Year
  Sex: Female

DRUGS (4)
  1. BROMOCRIPTINE [Interacting]
     Active Substance: BROMOCRIPTINE
     Dosage: 15 MG, DAILY
     Route: 065
  2. BROMOCRIPTINE [Interacting]
     Active Substance: BROMOCRIPTINE
     Indication: PROLACTIN-PRODUCING PITUITARY TUMOUR
     Dosage: UNK
     Route: 065
     Dates: start: 201205
  3. METFORMIN [Suspect]
     Active Substance: METFORMIN HYDROCHLORIDE
     Indication: TYPE 2 DIABETES MELLITUS
     Dosage: 1.5 G, DAILY
     Route: 065
     Dates: end: 201510
  4. METFORMIN [Interacting]
     Active Substance: METFORMIN HYDROCHLORIDE
     Dosage: UNK
     Route: 065
     Dates: start: 20171010

REACTIONS (9)
  - Blood prolactin increased [Unknown]
  - Exposure during pregnancy [Unknown]
  - Therapeutic response unexpected [Unknown]
  - Amenorrhoea [Unknown]
  - Recurrent cancer [Unknown]
  - Galactorrhoea [Unknown]
  - Drug resistance [Unknown]
  - Drug interaction [Unknown]
  - Live birth [Unknown]

NARRATIVE: CASE EVENT DATE: 201710
